FAERS Safety Report 10681777 (Version 1)
Quarter: 2014Q4

REPORT INFORMATION
  Report Type: Spontaneous
  Country: US (occurrence: None)
  Receive Date: 20141229
  Receipt Date: 20141229
  Transmission Date: 20150529
  Serious: No
  Sender: FDA-Public Use
  Company Number: None

PATIENT
  Age: 12 Year
  Sex: Female
  Weight: 60.6 kg

DRUGS (5)
  1. CHOLECALCIFEROL [Concomitant]
     Active Substance: CHOLECALCIFEROL
  2. ALBUTEROL. [Concomitant]
     Active Substance: ALBUTEROL
  3. CETIRIZINE [Concomitant]
     Active Substance: CETIRIZINE HYDROCHLORIDE
  4. DULOXETINE [Concomitant]
     Active Substance: DULOXETINE
  5. LIDOCAINE. [Suspect]
     Active Substance: LIDOCAINE
     Indication: NERVE BLOCK
     Dosage: NERVE BLOCK
     Dates: start: 20141210, end: 20141210

REACTIONS (5)
  - Toxicity to various agents [None]
  - Paraesthesia oral [None]
  - Tinnitus [None]
  - Unresponsive to stimuli [None]
  - Incorrect dose administered [None]

NARRATIVE: CASE EVENT DATE: 20141210
